FAERS Safety Report 7086111-3 (Version None)
Quarter: 2010Q4

REPORT INFORMATION
  Report Type: 
  Country: None (occurrence: None)
  Receive Date: 20101105
  Receipt Date: 20101027
  Transmission Date: 20110411
  Serious: Yes (Other)
  Sender: FDA-Public Use
  Company Number: B0676478A

PATIENT
  Sex: Male
  Weight: 2.5 kg

DRUGS (4)
  1. LAMICTAL [Suspect]
     Indication: PARTIAL SEIZURES
     Dosage: 25MG PER DAY
     Dates: start: 20100317
  2. LANDSEN [Suspect]
     Indication: PRODUCT USED FOR UNKNOWN INDICATION
     Dosage: 2MG PER DAY
  3. DIAZEPAM [Concomitant]
     Dosage: 5MG PER DAY
     Dates: end: 20100316
  4. MYSTAN [Concomitant]
     Dosage: 20MG PER DAY
     Dates: end: 20100803

REACTIONS (9)
  - APNOEA [None]
  - CAESAREAN SECTION [None]
  - DRUG WITHDRAWAL SYNDROME NEONATAL [None]
  - FEEDING DISORDER NEONATAL [None]
  - HAEMATOCRIT INCREASED [None]
  - HAEMOGLOBIN INCREASED [None]
  - MATERNAL DRUGS AFFECTING FOETUS [None]
  - RESPIRATORY DISORDER NEONATAL [None]
  - WHITE BLOOD CELL COUNT INCREASED [None]
